FAERS Safety Report 10166978 (Version 1)
Quarter: 2014Q2

REPORT INFORMATION
  Report Type: Spontaneous
  Country: US (occurrence: None)
  Receive Date: 20140508
  Receipt Date: 20140508
  Transmission Date: 20141212
  Serious: Yes (Other)
  Sender: FDA-Public Use
  Company Number: UTC-047677

PATIENT
  Age: 67 Year
  Sex: Female
  Weight: 58.96 kg

DRUGS (2)
  1. TYVASO [Suspect]
     Indication: SYSTEMIC SCLEROSIS
     Dates: start: 20140312
  2. REVATIO [Concomitant]

REACTIONS (3)
  - Oxygen saturation decreased [None]
  - Vision blurred [None]
  - Nocturnal dyspnoea [None]
